FAERS Safety Report 9970002 (Version 1)
Quarter: 2014Q1

REPORT INFORMATION
  Report Type: Spontaneous
  Country: US (occurrence: None)
  Receive Date: 20140127
  Receipt Date: 20140127
  Transmission Date: 20141002
  Serious: Yes (Other)
  Sender: FDA-Public Use
  Company Number: 1131256

PATIENT
  Sex: Male

DRUGS (10)
  1. RITUXAN [Suspect]
     Indication: LYMPHOMA
     Dosage: 100 MG/HR (500 CC) (656 MG, WEEKLY), UNKNOWN
  2. VELBAN (VINBLASTINE SULFATE) [Concomitant]
  3. NEUPOGEN (FILGRASTIM) [Concomitant]
  4. PREVACID (LANSOPRAZOLE) [Concomitant]
  5. BETADINE (POVIDONE-IODINE) [Concomitant]
  6. CISPLATINUM (CISPLATIN) [Concomitant]
  7. ETOPOSIDE (ETOPOSIDE) [Concomitant]
  8. CIPROFLOXACIN (CIPROFLOXACIN) [Concomitant]
  9. LASIX (FUROSEMIDE) [Concomitant]
  10. TYLENOL (PARACETAMOL) [Concomitant]

REACTIONS (13)
  - Tenderness [None]
  - Erythema [None]
  - Pigmentation disorder [None]
  - Oropharyngeal pain [None]
  - Lymphadenopathy [None]
  - Radiation mucositis [None]
  - Abdominal pain [None]
  - Asthenia [None]
  - Bronchitis [None]
  - Anaemia [None]
  - Neutropenia [None]
  - Nasopharyngitis [None]
  - Discomfort [None]
